FAERS Safety Report 7692091-X (Version None)
Quarter: 2011Q3

REPORT INFORMATION
  Report Type: 
  Country: None (occurrence: None)
  Receive Date: 20110818
  Receipt Date: 20110809
  Transmission Date: 20111222
  Serious: Yes (Life-Threatening, Hospitalization)
  Sender: FDA-Public Use
  Company Number: CH-GENZYME-CLOF-1001738

PATIENT
  Sex: Male
  Weight: 77 kg

DRUGS (8)
  1. CYTARABINE [Suspect]
     Indication: HAEMATOLOGICAL MALIGNANCY
     Dosage: 394 MG, UNK
     Route: 042
     Dates: start: 20110728, end: 20110803
  2. ZANTAC [Concomitant]
     Indication: PROPHYLAXIS
  3. EVOLTRA [Suspect]
     Indication: HAEMATOLOGICAL MALIGNANCY
     Dosage: 20 MG, UNK
     Route: 042
     Dates: start: 20110729, end: 20110802
  4. ALLOPURINOL [Concomitant]
     Indication: HYPERURICAEMIA
     Dosage: 300 MG, UNK
     Route: 048
     Dates: start: 20110729, end: 20110803
  5. IDARUBICIN HCL [Suspect]
     Indication: HAEMATOLOGICAL MALIGNANCY
     Dosage: 23.6 MG, UNK
     Route: 042
     Dates: start: 20110729, end: 20110731
  6. SOL MEDROL [Concomitant]
     Indication: PROPHYLAXIS OF NAUSEA AND VOMITING
     Dosage: 125 MG, UNK
     Route: 042
     Dates: start: 20110728, end: 20110804
  7. NAVOBAN [Concomitant]
     Indication: PROPHYLAXIS OF NAUSEA AND VOMITING
     Dosage: 5 MG, UNK
     Route: 042
     Dates: start: 20110728, end: 20110804
  8. FASTURTEC [Concomitant]
     Indication: HYPERURICAEMIA
     Dosage: 7.5 MG, UNK
     Dates: start: 20110728, end: 20110728

REACTIONS (1)
  - FASCIITIS [None]
